FAERS Safety Report 6087698-X (Version None)
Quarter: 2009Q1

REPORT INFORMATION
  Report Type: 
  Country: None (occurrence: None)
  Receive Date: 20090218
  Receipt Date: 20090218
  Transmission Date: 20090719
  Serious: Yes (Life-Threatening)
  Sender: FDA-Public Use
  Company Number: None

PATIENT
  Age: 14 Year
  Sex: Female
  Weight: 50.8029 kg

DRUGS (2)
  1. RIMANTADINE HYDROCHLORIDE [Suspect]
     Indication: PHARYNGITIS STREPTOCOCCAL
     Dosage: 1 TABLET 12 HRS-2 PER DAY- PO
     Route: 048
     Dates: start: 20090207, end: 20090211
  2. AMOXICILLIN [Suspect]
     Indication: PHARYNGITIS STREPTOCOCCAL
     Dosage: 1 TABLET TWICE PER DAY PO
     Route: 048
     Dates: start: 20090207, end: 20090217

REACTIONS (3)
  - CONVULSION [None]
  - FALL [None]
  - RESPIRATORY ARREST [None]
